FAERS Safety Report 9211928 (Version 1)
Quarter: 2013Q2

REPORT INFORMATION
  Report Type: Spontaneous
  Country: US (occurrence: US)
  Receive Date: 20130404
  Receipt Date: 20130404
  Transmission Date: 20140414
  Serious: Yes (Hospitalization)
  Sender: FDA-Public Use
  Company Number: US-B.I. PHARMACEUTICALS,INC./RIDGEFIELD-2013-BI-08916BP

PATIENT
  Age: 58 Year
  Sex: Male
  Weight: 95 kg

DRUGS (3)
  1. SPIRIVA [Suspect]
     Indication: CHRONIC OBSTRUCTIVE PULMONARY DISEASE
     Dosage: 18 MCG
     Route: 055
     Dates: start: 2011
  2. VERAPAMIL [Concomitant]
     Indication: MITRAL VALVE PROLAPSE
     Dosage: 180 MG
     Route: 048
  3. CEFADROXIL [Concomitant]
     Indication: ECZEMA
     Dosage: 500 MG
     Route: 048

REACTIONS (1)
  - Back injury [Recovered/Resolved]
